FAERS Safety Report 6571226-6 (Version None)
Quarter: 2010Q1

REPORT INFORMATION
  Report Type: 
  Country: None (occurrence: None)
  Receive Date: 20100204
  Receipt Date: 20090603
  Transmission Date: 20100710
  Serious: Yes (Other)
  Sender: FDA-Public Use
  Company Number: DE-GENENTECH-282226

PATIENT
  Sex: Male

DRUGS (4)
  1. XOLAIR [Suspect]
     Indication: ASTHMA
     Dosage: UNK
     Route: 058
     Dates: start: 20060101
  2. XOLAIR [Suspect]
     Dosage: 300 MG, UNK
     Route: 058
     Dates: start: 20090324
  3. VIANI [Concomitant]
     Indication: DRUG USE FOR UNKNOWN INDICATION
     Dosage: 100 A?G, UNK
  4. ALLERGENS [Concomitant]
     Indication: DRUG USE FOR UNKNOWN INDICATION
     Dosage: UNK
     Dates: start: 20080101

REACTIONS (8)
  - ADENOVIRUS INFECTION [None]
  - ALANINE AMINOTRANSFERASE INCREASED [None]
  - BLOOD BILIRUBIN INCREASED [None]
  - CYTOMEGALOVIRUS INFECTION [None]
  - HEPATOMEGALY [None]
  - INFECTION [None]
  - JAUNDICE [None]
  - OCULAR ICTERUS [None]
